FAERS Safety Report 9046216 (Version 2)
Quarter: 2013Q1

REPORT INFORMATION
  Report Type: Spontaneous
  Country: IT (occurrence: IT)
  Receive Date: 20130201
  Receipt Date: 20130207
  Transmission Date: 20140127
  Serious: Yes (Hospitalization)
  Sender: FDA-Public Use
  Company Number: PHHY2013IT007895

PATIENT
  Age: 49 Year
  Sex: Female

DRUGS (3)
  1. LORAZEPAM [Suspect]
     Indication: ANXIETY DISORDER
     Dosage: 15 MG, UNK
     Route: 048
     Dates: start: 20120924, end: 20120924
  2. OLANZAPINE [Suspect]
     Dosage: 10 DF, (TOTAL DOSE)
     Route: 048
     Dates: start: 20120924, end: 20120924
  3. DICLOFENAC POTASSIUM [Suspect]
     Dosage: 15 DF, (TOTAL DOSE)
     Route: 048
     Dates: start: 20120924, end: 20120924

REACTIONS (2)
  - Drug abuse [Recovering/Resolving]
  - Coma [Recovering/Resolving]
